FAERS Safety Report 18612465 (Version 1)
Quarter: 2020Q4

REPORT INFORMATION
  Report Type: Spontaneous
  Country: FR (occurrence: FR)
  Receive Date: 20201214
  Receipt Date: 20201214
  Transmission Date: 20210114
  Serious: Yes (Other)
  Sender: FDA-Public Use
  Company Number: FR-009507513-2012FRA004315

PATIENT
  Age: 81 Year
  Sex: Male
  Weight: 99 kg

DRUGS (7)
  1. CANDESARTAN CILEXETIL. [Concomitant]
     Active Substance: CANDESARTAN CILEXETIL
     Dosage: UNK
  2. DOLIPRANE [Concomitant]
     Active Substance: ACETAMINOPHEN
     Dosage: UNK
  3. ALFUZOSIN HYDROCHLORIDE. [Concomitant]
     Active Substance: ALFUZOSIN HYDROCHLORIDE
     Dosage: UNK
  4. ULTIBRO BREEZEHALER [Concomitant]
     Active Substance: GLYCOPYRRONIUM\INDACATEROL
     Dosage: UNK
  5. FIXORINOX [Concomitant]
     Dosage: UNK
  6. PIROXICAM. [Concomitant]
     Active Substance: PIROXICAM
     Dosage: UNK
  7. DIPROSTENE [Suspect]
     Active Substance: BETAMETHASONE DIPROPIONATE\BETAMETHASONE SODIUM PHOSPHATE
     Indication: TENDONITIS
     Dosage: UNK, SUSPENSION INJECTABLE
     Route: 052
     Dates: start: 20200717, end: 20200717

REACTIONS (1)
  - Herpes zoster [Recovering/Resolving]

NARRATIVE: CASE EVENT DATE: 20200720
